FAERS Safety Report 7650215-4 (Version None)
Quarter: 2011Q3

REPORT INFORMATION
  Report Type: 
  Country: None (occurrence: None)
  Receive Date: 20110727
  Receipt Date: 20110719
  Transmission Date: 20111222
  Serious: Yes (Death, Hospitalization)
  Sender: FDA-Public Use
  Company Number: ACO_25585_2011

PATIENT
  Age: 76 Year
  Sex: Female
  Weight: 100.2 kg

DRUGS (14)
  1. VITAMIN C    /00008001/ (ASCORBIC ACID) [Concomitant]
  2. AMPYRA [Suspect]
     Indication: DYSPHONIA
     Dosage: 10 MG, BID, ORAL
     Route: 048
     Dates: start: 20110612
  3. AMPYRA [Suspect]
     Indication: DYSPHAGIA
     Dosage: 10 MG, BID, ORAL
     Route: 048
     Dates: start: 20110612
  4. AMANTADINE HCL [Concomitant]
  5. LASIX [Concomitant]
  6. ZYRTEC [Concomitant]
  7. ASPIRIN [Concomitant]
  8. CALCIUM + VITAMIN D (CALCIUM CARBONATE, COLECALCIFEROL) [Concomitant]
  9. TYLENOL    /00020001/ (PARACETAMOL) [Concomitant]
  10. MUCINEX [Concomitant]
  11. CELEXA [Concomitant]
  12. BACLOFEN [Concomitant]
  13. CRANBERRY    /01512301/ (VACCINIUM MACROCARPON) TABLET [Concomitant]
  14. SIMETHICONE (SIMETICONE) [Concomitant]

REACTIONS (3)
  - PULMONARY EMBOLISM [None]
  - HYPOXIA [None]
  - MUSCLE TWITCHING [None]
